FAERS Safety Report 8859623 (Version 4)
Quarter: 2013Q4

REPORT INFORMATION
  Report Type: Spontaneous
  Country: US (occurrence: US)
  Receive Date: 20121025
  Receipt Date: 20131016
  Transmission Date: 20140711
  Serious: Yes (Other)
  Sender: FDA-Public Use
  Company Number: US-ROCHE-1078144

PATIENT
  Age: 12 Year
  Sex: Male
  Weight: 54.48 kg

DRUGS (1)
  1. ACCUTANE [Suspect]
     Indication: ACNE
     Route: 048
     Dates: start: 20000417, end: 200008

REACTIONS (6)
  - Colitis ulcerative [Unknown]
  - Polyp [Unknown]
  - Lip dry [Unknown]
  - Epistaxis [Unknown]
  - Blood triglycerides increased [Unknown]
  - Vision blurred [Unknown]
